FAERS Safety Report 5788233-3 (Version None)
Quarter: 2008Q2

REPORT INFORMATION
  Report Type: 
  Country: None (occurrence: None)
  Receive Date: 20080623
  Receipt Date: 20080613
  Transmission Date: 20081010
  Serious: Yes (Death, Hospitalization)
  Sender: FDA-Public Use
  Company Number: 20085269

PATIENT
  Sex: Female

DRUGS (1)
  1. LIORESAL [Suspect]
     Indication: MUSCLE SPASTICITY
     Dosage: MCG, DAILY,INTRATHECAL
     Route: 037

REACTIONS (3)
  - ABDOMINAL PAIN [None]
  - CAROTID ARTERY OCCLUSION [None]
  - DYSPNOEA [None]
